FAERS Safety Report 6903508-X (Version None)
Quarter: 2010Q3

REPORT INFORMATION
  Report Type: 
  Country: None (occurrence: None)
  Receive Date: 20100803
  Receipt Date: 20081015
  Transmission Date: 20110219
  Serious: Yes (Other)
  Sender: FDA-Public Use
  Company Number: US-PFIZER INC-2008067505

PATIENT
  Sex: Male
  Weight: 80.7 kg

DRUGS (14)
  1. LYRICA [Suspect]
     Indication: CONVULSION
     Dates: start: 20080701, end: 20080901
  2. BUMEX [Concomitant]
  3. VALSARTAN [Concomitant]
  4. NORVASC [Concomitant]
  5. OMEPRAZOLE [Concomitant]
  6. SPIRONOLACTONE [Concomitant]
  7. TOPROL-XL [Concomitant]
  8. VITAMIN B6 [Concomitant]
  9. VITAMIN D [Concomitant]
  10. LAMICTAL [Concomitant]
  11. FOLIC ACID [Concomitant]
  12. NASACORT [Concomitant]
  13. WARFARIN SODIUM [Concomitant]
  14. ZETIA [Concomitant]

REACTIONS (8)
  - BALANCE DISORDER [None]
  - CONSTIPATION [None]
  - DIZZINESS [None]
  - EJACULATION FAILURE [None]
  - ERECTILE DYSFUNCTION [None]
  - FATIGUE [None]
  - PARAESTHESIA [None]
  - WEIGHT INCREASED [None]
